FAERS Safety Report 25245412 (Version 1)
Quarter: 2025Q2

REPORT INFORMATION
  Report Type: Spontaneous
  Country: KR (occurrence: KR)
  Receive Date: 20250428
  Receipt Date: 20250428
  Transmission Date: 20250717
  Serious: Yes (Hospitalization)
  Sender: SAMSUNG BIOEPIS
  Company Number: KR-SAMSUNG BIOEPIS-SB-2025-14041

PATIENT
  Age: 71 Year
  Sex: Female
  Weight: 64.6 kg

DRUGS (7)
  1. TRASTUZUMAB [Suspect]
     Active Substance: TRASTUZUMAB
     Indication: Gallbladder cancer
     Route: 042
     Dates: start: 20241213, end: 20250310
  2. NIVOLUMAB [Suspect]
     Active Substance: NIVOLUMAB
     Indication: Gallbladder cancer
     Route: 042
     Dates: start: 20241213, end: 20250310
  3. GEMCITABINE [Suspect]
     Active Substance: GEMCITABINE
     Indication: Gallbladder cancer
     Route: 042
     Dates: start: 20241213, end: 20250317
  4. CISPLATIN [Suspect]
     Active Substance: CISPLATIN
     Indication: Gallbladder cancer
     Route: 042
     Dates: start: 20241213, end: 20250317
  5. DESOWEN [Concomitant]
     Active Substance: DESONIDE
     Indication: Product used for unknown indication
     Dates: start: 20250106
  6. TEGOPRAZAN [Concomitant]
     Active Substance: TEGOPRAZAN
     Indication: Product used for unknown indication
     Dates: start: 20250329
  7. URSODIOL [Concomitant]
     Active Substance: URSODIOL
     Indication: Prophylaxis
     Dates: start: 20250329

REACTIONS (2)
  - Blood bilirubin increased [Recovered/Resolved]
  - Off label use [Unknown]

NARRATIVE: CASE EVENT DATE: 20250412
